FAERS Safety Report 7284637-0 (Version None)
Quarter: 2011Q1

REPORT INFORMATION
  Report Type: 
  Country: None (occurrence: None)
  Receive Date: 20110210
  Receipt Date: 20110121
  Transmission Date: 20110831
  Serious: No
  Sender: FDA-Public Use
  Company Number: US-BIOGENIDEC-2011BI003815

PATIENT
  Age: 65 Year
  Sex: Female

DRUGS (4)
  1. TYSABRI [Suspect]
     Indication: MULTIPLE SCLEROSIS
     Route: 042
     Dates: start: 20090902, end: 20101227
  2. AMPYRA [Concomitant]
     Dates: start: 20100524, end: 20100908
  3. AVONEX [Concomitant]
     Indication: MULTIPLE SCLEROSIS
     Route: 030
     Dates: start: 20090801
  4. AVONEX [Concomitant]
     Route: 030
     Dates: start: 19970909, end: 19990915

REACTIONS (3)
  - GAIT DISTURBANCE [None]
  - FALL [None]
  - MUSCULAR WEAKNESS [None]
